FAERS Safety Report 20409050 (Version 1)
Quarter: 2022Q1

REPORT INFORMATION
  Report Type: Spontaneous
  Country: US (occurrence: US)
  Receive Date: 20220201
  Receipt Date: 20220201
  Transmission Date: 20220423
  Serious: No
  Sender: FDA-Public Use
  Company Number: US-JNJFOC-20220134020

PATIENT

DRUGS (1)
  1. BALVERSA [Suspect]
     Active Substance: ERDAFITINIB
     Indication: Transitional cell carcinoma
     Route: 065

REACTIONS (7)
  - Skin toxicity [Unknown]
  - Nail toxicity [Unknown]
  - Paronychia [Unknown]
  - Palmar-plantar erythrodysaesthesia syndrome [Unknown]
  - Hyperphosphataemia [Unknown]
  - Stomatitis [Unknown]
  - Dry skin [Unknown]
